FAERS Safety Report 8565021-6 (Version None)
Quarter: 2012Q3

REPORT INFORMATION
  Report Type: 
  Country: None (occurrence: None)
  Receive Date: 20120803
  Receipt Date: 20120730
  Transmission Date: 20120928
  Serious: Yes (Hospitalization)
  Sender: FDA-Public Use
  Company Number: US-ROCHE-1063058

PATIENT
  Sex: Male

DRUGS (5)
  1. PEGASYS [Suspect]
     Indication: HEPATITIS C
     Dates: start: 20120330
  2. PEGASYS [Suspect]
     Dates: start: 20120511
  3. RIBAVIRIN [Suspect]
     Dates: start: 20120503
  4. RIBAVIRIN [Suspect]
     Indication: HEPATITIS C
     Dates: start: 20120330
  5. BOCEPREVIR [Suspect]
     Indication: HEPATITIS C
     Dates: start: 20120428

REACTIONS (11)
  - HEAD INJURY [None]
  - BLOOD COUNT ABNORMAL [None]
  - FALL [None]
  - LIMB INJURY [None]
  - PLATELET COUNT DECREASED [None]
  - NECK INJURY [None]
  - NAUSEA [None]
  - FATIGUE [None]
  - WHITE BLOOD CELL COUNT DECREASED [None]
  - RED BLOOD CELL COUNT DECREASED [None]
  - PAIN [None]
